FAERS Safety Report 8966121 (Version 2)
Quarter: 2013Q1

REPORT INFORMATION
  Report Type: Spontaneous
  Country: US (occurrence: US)
  Receive Date: 20121217
  Receipt Date: 20130214
  Transmission Date: 20140127
  Serious: No
  Sender: FDA-Public Use
  Company Number: US-PFIZER INC-2012316551

PATIENT
  Sex: Male

DRUGS (2)
  1. GEODON [Suspect]
  2. PRISTIQ [Concomitant]

REACTIONS (2)
  - Drug ineffective [Unknown]
  - Vision blurred [Unknown]
